FAERS Safety Report 6277787-9 (Version None)
Quarter: 2009Q3

REPORT INFORMATION
  Report Type: 
  Country: None (occurrence: None)
  Receive Date: 20090720
  Receipt Date: 20090715
  Transmission Date: 20100115
  Serious: Yes (Life-Threatening, Hospitalization)
  Sender: FDA-Public Use
  Company Number: GXKR2009DE07998

PATIENT
  Age: 84 Year
  Sex: Female
  Weight: 63 kg

DRUGS (14)
  1. ACETYLSALICYLIC ACID (NGX) (ACETYLSALICYLIC ACID) TABLET, 100MG [Suspect]
     Indication: CORONARY ARTERY DISEASE
     Dosage: 100 MG, ORAL
     Route: 048
     Dates: start: 19920101, end: 20090414
  2. PREDNISOLONE [Suspect]
     Indication: CHRONIC OBSTRUCTIVE PULMONARY DISEASE
     Dosage: 5 MG, QD, ORAL
     Route: 048
     Dates: start: 20090326, end: 20090604
  3. ROCEPHIN [Suspect]
     Indication: PNEUMONIA
     Dosage: 2 G, QD, INTRAVENEOUS
     Route: 042
     Dates: start: 20090325, end: 20090406
  4. RULID (ROXITHROMYCIN) [Suspect]
     Indication: PNEUMONIA
     Dosage: 300 MG, QD, ORAL
     Route: 048
     Dates: start: 20090326, end: 20090406
  5. PANTOPRAZOLE SODIUM [Suspect]
     Indication: PROPHYLAXIS AGAINST GASTROINTESTINAL ULCER
     Dosage: 40 MG, QHS, ORAL
     Route: 048
     Dates: start: 20090101
  6. SYMBICORT [Suspect]
     Indication: CHRONIC OBSTRUCTIVE PULMONARY DISEASE
     Dosage: RESPIRATORY
     Route: 055
     Dates: start: 20090101
  7. ACTRAPID HUMAN (INSULIN HUMAN) [Concomitant]
  8. ALDACTONE [Concomitant]
  9. LERCANIDIPINE [Concomitant]
  10. CARVEDILOL [Concomitant]
  11. LANTUS [Concomitant]
  12. SPIRIVA [Concomitant]
  13. TORSEMIDE [Concomitant]
  14. XIPRAMIDE (XIPRAMIDE) [Concomitant]

REACTIONS (2)
  - CLOSTRIDIUM DIFFICILE COLITIS [None]
  - DRUG INTERACTION [None]
